FAERS Safety Report 11793103 (Version 2)
Quarter: 2015Q4

REPORT INFORMATION
  Report Type: Report from Study
  Country: JP (occurrence: JP)
  Receive Date: 20151202
  Receipt Date: 20151214
  Transmission Date: 20160305
  Serious: Yes (Hospitalization)
  Sender: FDA-Public Use
  Company Number: JP-ROCHE-1671447

PATIENT
  Age: 85 Year
  Sex: Male

DRUGS (10)
  1. NEXIUM [Concomitant]
     Active Substance: ESOMEPRAZOLE MAGNESIUM
  2. CONIEL [Concomitant]
     Active Substance: BENIDIPINE HYDROCHLORIDE
  3. SESDEN [Concomitant]
     Active Substance: TIMEPIDIUM BROMIDE
  4. CRAVIT [Concomitant]
     Active Substance: LEVOFLOXACIN
     Route: 065
     Dates: start: 20111224, end: 20150713
  5. CRAVIT [Concomitant]
     Active Substance: LEVOFLOXACIN
     Route: 065
     Dates: start: 20151002
  6. RANIBIZUMAB [Suspect]
     Active Substance: RANIBIZUMAB
     Dosage: 10 JUL 2015, LAST DOSE OF LUCENTIS
     Route: 050
     Dates: start: 20150710
  7. MUCOSTA [Concomitant]
     Active Substance: REBAMIPIDE
  8. RANIBIZUMAB [Suspect]
     Active Substance: RANIBIZUMAB
     Route: 050
     Dates: start: 20151009
  9. URIEF [Concomitant]
     Active Substance: SILODOSIN
  10. RANIBIZUMAB [Suspect]
     Active Substance: RANIBIZUMAB
     Indication: NEOVASCULAR AGE-RELATED MACULAR DEGENERATION
     Route: 050
     Dates: start: 20111227

REACTIONS (1)
  - Cerebral infarction [Recovering/Resolving]

NARRATIVE: CASE EVENT DATE: 20150815
